FAERS Safety Report 8774537 (Version 2)
Quarter: 2012Q4

REPORT INFORMATION
  Report Type: 
  Country: US (occurrence: US)
  Receive Date: 20120907
  Receipt Date: 20121105
  Transmission Date: 20130627
  Serious: Yes (Hospitalization)
  Sender: FDA-Public Use
  Company Number: US-BIOGENIDEC-2012BI035494

PATIENT
  Sex: Male

DRUGS (4)
  1. DOXYCYCLINE [Concomitant]
  2. TYSABRI [Suspect]
     Indication: MULTIPLE SCLEROSIS
     Route: 042
     Dates: start: 20071119, end: 201206
  3. BACLOFEN [Concomitant]
  4. AMANTADINE [Concomitant]

REACTIONS (1)
  - Cellulitis [Recovered/Resolved]
